FAERS Safety Report 5821762-2 (Version None)
Quarter: 2008Q3

REPORT INFORMATION
  Report Type: 
  Country: None (occurrence: None)
  Receive Date: 20080717
  Receipt Date: 20080707
  Transmission Date: 20090109
  Serious: Yes (Other)
  Sender: FDA-Public Use
  Company Number: TOR 2008-0025

PATIENT
  Age: 72 Year
  Sex: Female

DRUGS (13)
  1. FARESTON [Suspect]
     Indication: BREAST CANCER
     Dosage: 120 MG ORAL, 120 MG ORAL, 80 MG ORAL
     Route: 048
     Dates: start: 20030530, end: 20030728
  2. FARESTON [Suspect]
     Indication: BREAST CANCER
     Dosage: 120 MG ORAL, 120 MG ORAL, 80 MG ORAL
     Route: 048
     Dates: start: 20030805, end: 20060517
  3. FARESTON [Suspect]
     Indication: BREAST CANCER
     Dosage: 120 MG ORAL, 120 MG ORAL, 80 MG ORAL
     Route: 048
     Dates: start: 20060518, end: 20080430
  4. EPIRUBICIN [Concomitant]
  5. PACLITAXEL [Concomitant]
  6. DEXAMETHASONE [Concomitant]
  7. FAMOTIDINE [Concomitant]
  8. AZASETRON [Concomitant]
  9. DIPHENHYDRAMINE HCL [Concomitant]
  10. ETHYL ICOSPENTATE [Concomitant]
  11. ATORVASTATIN CALCIUM [Concomitant]
  12. PRAVASTATIN SODIUM [Concomitant]
  13. SA-I-RE-I-TO (CHINESES DRUG) [Concomitant]

REACTIONS (5)
  - CERVICAL DYSPLASIA [None]
  - ENDOMETRIAL DYSPLASIA [None]
  - ENDOMETRIAL HYPERTROPHY [None]
  - UTERINE ENLARGEMENT [None]
  - UTERINE POLYP [None]
